FAERS Safety Report 24288056 (Version 7)
Quarter: 2025Q3

REPORT INFORMATION
  Report Type: Report from Study
  Country: US (occurrence: US)
  Receive Date: 20240905
  Receipt Date: 20250902
  Transmission Date: 20251021
  Serious: Yes (Other)
  Sender: SUNOVION
  Company Number: US-SUMITOMO PHARMA SWITZERLAND GMBH-2024SPA001247

PATIENT
  Age: 79 Year
  Sex: Male

DRUGS (3)
  1. ORGOVYX [Suspect]
     Active Substance: RELUGOLIX
     Indication: Prostate cancer
     Dosage: 360 MG, SINGLE
     Route: 048
     Dates: start: 20240723, end: 20240723
  2. ORGOVYX [Suspect]
     Active Substance: RELUGOLIX
     Dosage: 120 MG, QD
     Route: 048
     Dates: start: 20240724
  3. XTANDI [Suspect]
     Active Substance: ENZALUTAMIDE

REACTIONS (15)
  - Neuropathy peripheral [Unknown]
  - Lymphoma [Unknown]
  - Cervical vertebral fracture [Unknown]
  - Fall [Unknown]
  - Blood testosterone abnormal [Unknown]
  - Pain [Unknown]
  - Hypersensitivity [Unknown]
  - Clavicle fracture [Unknown]
  - Pelvic pain [Unknown]
  - Rib fracture [Unknown]
  - Back pain [Unknown]
  - Asthenia [Unknown]
  - Fatigue [Unknown]
  - Arthralgia [Unknown]
  - Adverse drug reaction [Unknown]
